FAERS Safety Report 22105391 (Version 1)
Quarter: 2023Q1

REPORT INFORMATION
  Report Type: Report from Study
  Country: US (occurrence: US)
  Receive Date: 20230317
  Receipt Date: 20230317
  Transmission Date: 20230417
  Serious: No
  Sender: FDA-Public Use
  Company Number: US-ACADIA PHARMACEUTICALS INC.-ACA-2023-PIM-000729

PATIENT
  Age: 75 Year
  Sex: Female
  Weight: 59 kg

DRUGS (10)
  1. NUPLAZID [Suspect]
     Active Substance: PIMAVANSERIN TARTRATE
     Indication: Parkinson^s disease psychosis
     Dosage: 34 MILLIGRAM, QD
     Route: 048
     Dates: start: 20221001
  2. NUPLAZID [Suspect]
     Active Substance: PIMAVANSERIN TARTRATE
     Indication: Hallucination
  3. NUPLAZID [Suspect]
     Active Substance: PIMAVANSERIN TARTRATE
     Indication: Parkinson^s disease
  4. CARBIDOPA\LEVODOPA [Concomitant]
     Active Substance: CARBIDOPA\LEVODOPA
     Dosage: 25/100MG 1 FULL TABLET A DAY, HALF TABLET 3X A DAY, ORIGINALLY 1 TABLET 4X A DAY
  5. POTASSIUM CHLORIDE [Concomitant]
     Active Substance: POTASSIUM CHLORIDE
     Dosage: 10MEQ TWICE A DAY
  6. DOXYCYCLINE [Concomitant]
     Active Substance: DOXYCYCLINE
     Dosage: 20 MILLIGRAM, QD
  7. FUROSEMIDE [Concomitant]
     Active Substance: FUROSEMIDE
     Dosage: 20 MILLIGRAM, QD
  8. GEMTESA [Concomitant]
     Active Substance: VIBEGRON
     Dosage: 75 MILLIGRAM, QD
  9. DONEPEZIL [Concomitant]
     Active Substance: DONEPEZIL
     Dosage: 12 MILLIGRAM
  10. CELECOXIB [Concomitant]
     Active Substance: CELECOXIB
     Dosage: 200 MILLIGRAM, QD

REACTIONS (9)
  - Loss of personal independence in daily activities [Not Recovered/Not Resolved]
  - Memory impairment [Not Recovered/Not Resolved]
  - Posture abnormal [Not Recovered/Not Resolved]
  - Hypersomnia [Not Recovered/Not Resolved]
  - Gait disturbance [Not Recovered/Not Resolved]
  - Confusional state [Not Recovered/Not Resolved]
  - Fall [Not Recovered/Not Resolved]
  - Hallucination, visual [Not Recovered/Not Resolved]
  - Hallucination [Unknown]

NARRATIVE: CASE EVENT DATE: 20221101
